FAERS Safety Report 4456744-9 (Version None)
Quarter: 2004Q3

REPORT INFORMATION
  Report Type: 
  Country: None (occurrence: None)
  Receive Date: 20040921
  Receipt Date: 20040908
  Transmission Date: 20050211
  Serious: Yes (Life-Threatening, Hospitalization)
  Sender: FDA-Public Use
  Company Number: 04P-020-0272652-00

PATIENT
  Age: 38 Year
  Sex: Male

DRUGS (11)
  1. NORVIR [Suspect]
     Indication: HIV INFECTION
     Dosage: 1 TABLET, 2 IN 1 D, PER ORAL
     Route: 048
     Dates: start: 20040524
  2. TMC114 [Concomitant]
  3. TENOFOVIR [Concomitant]
  4. LAMIVUDINE [Concomitant]
  5. IRON [Concomitant]
  6. LOPERAMIDE HCL [Concomitant]
  7. BACTRIM [Concomitant]
  8. METAMIZOLE SODIUM [Concomitant]
  9. DIMETICONE [Concomitant]
  10. FLUCONAZOLE [Concomitant]
  11. VALACYCLOVIR HCL [Concomitant]

REACTIONS (4)
  - HYPERTENSION [None]
  - ORTHOPNOEA [None]
  - PERICARDITIS [None]
  - TACHYCARDIA [None]
